FAERS Safety Report 21903177 (Version 1)
Quarter: 2023Q1

REPORT INFORMATION
  Report Type: Spontaneous
  Country: US (occurrence: US)
  Receive Date: 20230124
  Receipt Date: 20230124
  Transmission Date: 20230418
  Serious: No
  Sender: FDA-Public Use
  Company Number: US-GSK-US2023008648

PATIENT
  Sex: Female

DRUGS (1)
  1. ATOVAQUONE [Suspect]
     Active Substance: ATOVAQUONE
     Indication: Immune system disorder
     Dosage: UNK UNK, QD, 1500MG/10ML 2 TEASPOONS DAILY

REACTIONS (3)
  - Cough [Unknown]
  - Sneezing [Unknown]
  - Influenza [Unknown]
